FAERS Safety Report 5641071-4 (Version None)
Quarter: 2008Q1

REPORT INFORMATION
  Report Type: 
  Country: None (occurrence: None)
  Receive Date: 20080227
  Receipt Date: 20080218
  Transmission Date: 20080703
  Serious: Yes (Hospitalization)
  Sender: FDA-Public Use
  Company Number: FR-AVENTIS-200810003FR

PATIENT
  Age: 94 Year
  Sex: Female

DRUGS (12)
  1. PYOSTACINE [Suspect]
     Route: 048
     Dates: start: 20071017, end: 20071019
  2. LASILIX                            /00032601/ [Suspect]
     Indication: DRUG USE FOR UNKNOWN INDICATION
     Route: 048
  3. LANZOR [Suspect]
     Indication: DRUG USE FOR UNKNOWN INDICATION
     Route: 048
     Dates: end: 20071019
  4. CORDARONE [Suspect]
     Indication: ATRIAL FIBRILLATION
     Route: 048
  5. KARDEGIC                           /00002703/ [Suspect]
     Indication: DRUG USE FOR UNKNOWN INDICATION
     Route: 048
  6. TIAPRIDAL                          /00435701/ [Suspect]
     Indication: DRUG USE FOR UNKNOWN INDICATION
     Route: 048
  7. FORLAX [Suspect]
     Indication: DRUG USE FOR UNKNOWN INDICATION
     Route: 048
  8. NOCTRAN [Concomitant]
     Indication: DRUG USE FOR UNKNOWN INDICATION
     Route: 048
  9. DERMOVAL                           /00337102/ [Concomitant]
     Route: 061
     Dates: start: 20070929
  10. ECONAZOLE NITRATE [Concomitant]
     Route: 061
     Dates: start: 20070929
  11. KETODERM                           /00532501/ [Concomitant]
     Route: 061
     Dates: start: 20071004
  12. LAMISIL [Concomitant]
     Dates: start: 20071004

REACTIONS (2)
  - CONDITION AGGRAVATED [None]
  - RASH PUSTULAR [None]
